FAERS Safety Report 6399189-7 (Version None)
Quarter: 2009Q4

REPORT INFORMATION
  Report Type: 
  Country: None (occurrence: None)
  Receive Date: 20091008
  Receipt Date: 20090923
  Transmission Date: 20100525
  Serious: Yes (Other)
  Sender: FDA-Public Use
  Company Number: AUR-APL-2009-00713

PATIENT
  Age: 52 Year
  Sex: Male

DRUGS (17)
  1. ZIDOVUDINE [Suspect]
     Indication: HIV INFECTION
  2. LAMIVUDINE [Suspect]
     Indication: HIV INFECTION
  3. DIDANOSINE [Suspect]
     Indication: HIV INFECTION
  4. STAVUDINE [Suspect]
     Indication: HIV INFECTION
  5. ABACAVIR [Suspect]
     Indication: HIV INFECTION
  6. NEVIRAPINE [Suspect]
     Indication: HIV INFECTION
  7. DELAVIRDINE [Suspect]
     Indication: HIV INFECTION
  8. EFAVIRENZ [Suspect]
     Indication: HIV INFECTION
  9. INDINAVIR [Suspect]
     Indication: HIV INFECTION
  10. SAQUINAVIR [Suspect]
     Indication: HIV INFECTION
  11. NELFINAVIR MESYLATE [Suspect]
     Indication: HIV INFECTION
  12. LOPINAVIR [Suspect]
     Indication: HIV INFECTION
  13. RITONAVIR [Suspect]
     Indication: HIV INFECTION
  14. TENOFOVIR [Suspect]
     Indication: HIV INFECTION
  15. DARUNAVIR [Suspect]
     Indication: HIV INFECTION
  16. ETRAVIRINE [Suspect]
     Indication: HIV INFECTION
  17. RALTEGRAVIR [Suspect]
     Indication: HIV INFECTION

REACTIONS (4)
  - EYELID PTOSIS [None]
  - LIPODYSTROPHY ACQUIRED [None]
  - MITOCHONDRIAL TOXICITY [None]
  - OPHTHALMOPLEGIA [None]
